FAERS Safety Report 5452331-4 (Version None)
Quarter: 2007Q3

REPORT INFORMATION
  Report Type: 
  Country: None (occurrence: None)
  Receive Date: 20070912
  Receipt Date: 20070912
  Transmission Date: 20080115
  Serious: Yes (Death, Other)
  Sender: FDA-Public Use
  Company Number: None

PATIENT
  Age: 40 Year
  Sex: Female
  Weight: 58.9676 kg

DRUGS (3)
  1. ZOLOFT [Suspect]
     Indication: ANXIETY
     Dosage: 100MG ONE PER DAY PO
     Route: 048
  2. ZOLOFT [Suspect]
     Indication: DEPRESSION
     Dosage: 100MG ONE PER DAY PO
     Route: 048
  3. ZOLOFT [Suspect]
     Indication: DEPRESSION
     Dosage: 10MG TWO PER DAY PO
     Route: 048

REACTIONS (11)
  - AGITATION [None]
  - AKINAESTHESIA [None]
  - ALCOHOL USE [None]
  - ANXIETY [None]
  - COMPLETED SUICIDE [None]
  - DEPRESSION [None]
  - DISINHIBITION [None]
  - DRUG INEFFECTIVE [None]
  - GUN SHOT WOUND [None]
  - IMPULSE-CONTROL DISORDER [None]
  - STRESS [None]
